FAERS Safety Report 17856520 (Version 1)
Quarter: 2020Q2

REPORT INFORMATION
  Report Type: Spontaneous
  Country: CA (occurrence: CA)
  Receive Date: 20200603
  Receipt Date: 20200603
  Transmission Date: 20200714
  Serious: Yes (Other)
  Sender: FDA-Public Use
  Company Number: CA-TEVA-2020-CA-1243108

PATIENT
  Age: 56 Year
  Sex: Female
  Weight: 70 kg

DRUGS (14)
  1. ENBREL [Suspect]
     Active Substance: ETANERCEPT
     Indication: PRODUCT USED FOR UNKNOWN INDICATION
     Route: 065
  2. ESTALIS [Concomitant]
     Active Substance: ESTRADIOL\NORETHINDRONE ACETATE
     Route: 062
  3. CIPROFLOXACIN. [Suspect]
     Active Substance: CIPROFLOXACIN
     Indication: CYSTITIS
     Route: 065
  4. LORAZEPAM. [Concomitant]
     Active Substance: LORAZEPAM
  5. ZOPICLONE [Concomitant]
     Active Substance: ZOPICLONE
     Route: 048
  6. ACTEMRA [Suspect]
     Active Substance: TOCILIZUMAB
     Indication: RHEUMATOID ARTHRITIS
     Route: 058
  7. BOTULINUM TOXIN TYPE A [Concomitant]
     Active Substance: BOTULINUM TOXIN TYPE A
  8. ACETAMINOPHEN. [Concomitant]
     Active Substance: ACETAMINOPHEN
     Indication: PAIN
     Route: 065
  9. AMITRIPTYLINE [Concomitant]
     Active Substance: AMITRIPTYLINE
     Route: 048
  10. CAFFEINE. [Concomitant]
     Active Substance: CAFFEINE
  11. CITALOPRAM [Concomitant]
     Active Substance: CITALOPRAM HYDROBROMIDE
     Route: 048
  12. CODEINE [Concomitant]
     Active Substance: CODEINE
     Route: 048
  13. MOMETASONE FUROATE. [Concomitant]
     Active Substance: MOMETASONE FUROATE
     Route: 065
  14. SERTRALINE HYDROCHLORIDE. [Concomitant]
     Active Substance: SERTRALINE HYDROCHLORIDE

REACTIONS (52)
  - Arthralgia [Not Recovered/Not Resolved]
  - Bone pain [Not Recovered/Not Resolved]
  - Confusional state [Not Recovered/Not Resolved]
  - Cystitis [Not Recovered/Not Resolved]
  - Dyspnoea [Not Recovered/Not Resolved]
  - Pain [Not Recovered/Not Resolved]
  - Procedural anxiety [Not Recovered/Not Resolved]
  - Rash [Not Recovered/Not Resolved]
  - Rheumatoid arthritis [Not Recovered/Not Resolved]
  - Stress [Not Recovered/Not Resolved]
  - White blood cell count decreased [Not Recovered/Not Resolved]
  - Chest discomfort [Not Recovered/Not Resolved]
  - Chills [Not Recovered/Not Resolved]
  - Menopause [Not Recovered/Not Resolved]
  - Nerve injury [Not Recovered/Not Resolved]
  - Peripheral swelling [Not Recovered/Not Resolved]
  - Swelling [Not Recovered/Not Resolved]
  - Swelling face [Not Recovered/Not Resolved]
  - Dizziness [Not Recovered/Not Resolved]
  - Erythema of eyelid [Not Recovered/Not Resolved]
  - Anxiety [Not Recovered/Not Resolved]
  - Chest pain [Not Recovered/Not Resolved]
  - Malaise [Not Recovered/Not Resolved]
  - Choking [Not Recovered/Not Resolved]
  - Decreased appetite [Not Recovered/Not Resolved]
  - Dental caries [Not Recovered/Not Resolved]
  - Depressed mood [Not Recovered/Not Resolved]
  - Diaphragmatic rupture [Not Recovered/Not Resolved]
  - Musculoskeletal stiffness [Not Recovered/Not Resolved]
  - Injection site haemorrhage [Not Recovered/Not Resolved]
  - Nausea [Not Recovered/Not Resolved]
  - Vitamin D decreased [Not Recovered/Not Resolved]
  - Abdominal pain upper [Not Recovered/Not Resolved]
  - Amnesia [Not Recovered/Not Resolved]
  - Change of bowel habit [Not Recovered/Not Resolved]
  - Fatigue [Not Recovered/Not Resolved]
  - Hyperhidrosis [Not Recovered/Not Resolved]
  - Joint swelling [Not Recovered/Not Resolved]
  - Osteoarthritis [Not Recovered/Not Resolved]
  - Pruritus [Not Recovered/Not Resolved]
  - Thyroid disorder [Not Recovered/Not Resolved]
  - Urticaria [Not Recovered/Not Resolved]
  - Vomiting [Not Recovered/Not Resolved]
  - Cardiac disorder [Not Recovered/Not Resolved]
  - Fungal skin infection [Not Recovered/Not Resolved]
  - Insomnia [Not Recovered/Not Resolved]
  - Loss of consciousness [Not Recovered/Not Resolved]
  - Nasopharyngitis [Not Recovered/Not Resolved]
  - Pain in extremity [Not Recovered/Not Resolved]
  - Skin discolouration [Not Recovered/Not Resolved]
  - Somnolence [Not Recovered/Not Resolved]
  - Vitreous floaters [Not Recovered/Not Resolved]
